FAERS Safety Report 4863175-6 (Version None)
Quarter: 2005Q4

REPORT INFORMATION
  Report Type: 
  Country: None (occurrence: None)
  Receive Date: 20051219
  Receipt Date: 20051130
  Transmission Date: 20060501
  Serious: Yes (Hospitalization)
  Sender: FDA-Public Use
  Company Number: DSA_27483_2005

PATIENT
  Age: 74 Year
  Sex: Male

DRUGS (1)
  1. NIFEDIPINE [Suspect]
     Dosage: DF

REACTIONS (6)
  - FIBROSIS [None]
  - INFLAMMATION [None]
  - INTESTINAL OBSTRUCTION [None]
  - MEDICATION RESIDUE [None]
  - MUCOSAL ULCERATION [None]
  - SMALL INTESTINAL STENOSIS [None]
